FAERS Safety Report 19011844 (Version 1)
Quarter: 2021Q1

REPORT INFORMATION
  Report Type: Spontaneous
  Country: US (occurrence: US)
  Receive Date: 20210315
  Receipt Date: 20210315
  Transmission Date: 20210420
  Serious: No
  Sender: FDA-Public Use
  Company Number: US-PERRIGO-20US003255

PATIENT
  Age: 53 Year
  Sex: Male
  Weight: 122.45 kg

DRUGS (33)
  1. ANORO ELLIPTA [Concomitant]
     Active Substance: UMECLIDINIUM BROMIDE\VILANTEROL TRIFENATATE
     Indication: RESPIRATORY DISORDER
     Dosage: UNK, UNK
     Route: 055
     Dates: start: 2019, end: 2020
  2. ALBUTEROL                          /00139501/ [Concomitant]
     Active Substance: ALBUTEROL
     Indication: BRONCHITIS
  3. SCOPOLAMINE [Suspect]
     Active Substance: SCOPOLAMINE
     Indication: HEADACHE
  4. FIORICET [Concomitant]
     Active Substance: ACETAMINOPHEN\BUTALBITAL\CAFFEINE
     Indication: HEADACHE
     Dosage: UNK, UNK
     Route: 048
     Dates: start: 1989
  5. FINASTERIDE. [Concomitant]
     Active Substance: FINASTERIDE
     Indication: PROSTATOMEGALY
     Dosage: UNK, UNK
     Route: 048
     Dates: start: 1990
  6. LATANOPROST. [Concomitant]
     Active Substance: LATANOPROST
     Indication: GLAUCOMA
     Dosage: UNK, UNK
     Route: 047
     Dates: start: 2018
  7. ESCITALOPRAM [Concomitant]
     Active Substance: ESCITALOPRAM OXALATE
     Indication: DEPRESSION
     Dosage: UNK, UNK
     Route: 048
     Dates: start: 2000
  8. LITHIUM. [Concomitant]
     Active Substance: LITHIUM
     Indication: AFFECTIVE DISORDER
     Dosage: UNK, UNK
     Route: 048
  9. HYDROCORTISONE. [Concomitant]
     Active Substance: HYDROCORTISONE
     Indication: SKIN IRRITATION
     Dosage: UNK, BID PRN
     Route: 061
  10. SCOPOLAMINE [Suspect]
     Active Substance: SCOPOLAMINE
     Indication: DIZZINESS
     Dosage: 1 MG, EVERY 48 HOURS, PRN
     Route: 062
     Dates: start: 20150130
  11. COLACE [Concomitant]
     Active Substance: DOCUSATE SODIUM
     Indication: IRRITABLE BOWEL SYNDROME
  12. OMEPRAZOLE. [Concomitant]
     Active Substance: OMEPRAZOLE
     Indication: GASTROOESOPHAGEAL REFLUX DISEASE
     Dosage: UNK, UNK
     Route: 048
     Dates: start: 2017
  13. SCOPOLAMINE [Suspect]
     Active Substance: SCOPOLAMINE
     Indication: VOMITING
  14. NIFEDIPINE. [Concomitant]
     Active Substance: NIFEDIPINE
     Indication: HYPERTENSION
     Dosage: UNK, UNK
     Route: 048
     Dates: start: 202001
  15. COLACE [Concomitant]
     Active Substance: DOCUSATE SODIUM
     Indication: CONSTIPATION
  16. OMEPRAZOLE. [Concomitant]
     Active Substance: OMEPRAZOLE
     Indication: ABDOMINAL DISCOMFORT
  17. HYDROCODONE [Concomitant]
     Active Substance: HYDROCODONE
     Indication: CHOLECYSTECTOMY
  18. ASPIRIN                            /00002701/ [Concomitant]
     Active Substance: ASPIRIN
     Indication: BACK PAIN
     Dosage: UNK, PRN
     Route: 048
  19. HYDROCORTISONE. [Concomitant]
     Active Substance: HYDROCORTISONE
     Indication: BLISTER
  20. BETAMETHASONE. [Concomitant]
     Active Substance: BETAMETHASONE
     Indication: SKIN IRRITATION
     Dosage: UNK, UNK
     Route: 061
  21. TAMSULOSIN [Concomitant]
     Active Substance: TAMSULOSIN
     Indication: PROSTATOMEGALY
     Dosage: UNK, UNK
     Route: 048
     Dates: start: 1990
  22. HYDROCODONE [Concomitant]
     Active Substance: HYDROCODONE
     Indication: BACK PAIN
     Dosage: UNK, PRN
     Route: 048
  23. ECONAZOLE NITRATE. [Concomitant]
     Active Substance: ECONAZOLE NITRATE
     Indication: PROPHYLAXIS
     Dosage: UNK, UNK
     Route: 061
  24. SCOPOLAMINE [Suspect]
     Active Substance: SCOPOLAMINE
     Indication: NAUSEA
  25. PRAVASTATIN. [Concomitant]
     Active Substance: PRAVASTATIN
     Indication: BLOOD CHOLESTEROL ABNORMAL
     Dosage: UNK, UNK
     Route: 048
     Dates: start: 1990
  26. TIMOLOL. [Concomitant]
     Active Substance: TIMOLOL
     Indication: GLAUCOMA
     Dosage: UNK, UNK
     Route: 047
     Dates: start: 2018
  27. LORAZEPAM. [Concomitant]
     Active Substance: LORAZEPAM
     Indication: INSOMNIA
     Dosage: UNK, UNK
     Route: 048
     Dates: start: 1990
  28. COLACE [Concomitant]
     Active Substance: DOCUSATE SODIUM
     Indication: FAECES HARD
     Dosage: UNK, PRN
     Route: 048
     Dates: start: 1980
  29. HYDROCODONE [Concomitant]
     Active Substance: HYDROCODONE
     Indication: APPENDICECTOMY
  30. TRETINOIN. [Concomitant]
     Active Substance: TRETINOIN
     Indication: ACNE
     Dosage: UNK, UNK
     Route: 061
  31. LEVOTHYROXINE. [Concomitant]
     Active Substance: LEVOTHYROXINE
     Indication: BLOOD THYROID STIMULATING HORMONE DECREASED
     Dosage: UNK, UNK
     Route: 048
     Dates: start: 1990
  32. LITHIUM. [Concomitant]
     Active Substance: LITHIUM
     Indication: DEPRESSION
  33. ALBUTEROL                          /00139501/ [Concomitant]
     Active Substance: ALBUTEROL
     Indication: RESPIRATORY DISORDER
     Dosage: UNK, PRN
     Route: 055
     Dates: start: 2000

REACTIONS (6)
  - Dry mouth [Not Recovered/Not Resolved]
  - Product administered at inappropriate site [Not Recovered/Not Resolved]
  - Withdrawal syndrome [Unknown]
  - Cough [Not Recovered/Not Resolved]
  - Drug ineffective for unapproved indication [Unknown]
  - Prescribed overdose [Not Recovered/Not Resolved]

NARRATIVE: CASE EVENT DATE: 20150130
